FAERS Safety Report 19934050 (Version 1)
Quarter: 2021Q4

REPORT INFORMATION
  Report Type: Spontaneous
  Country: US (occurrence: US)
  Receive Date: 20211008
  Receipt Date: 20211008
  Transmission Date: 20220303
  Serious: Yes (Hospitalization, Other)
  Sender: FDA-Public Use
  Company Number: US-ELI_LILLY_AND_COMPANY-US202109011748

PATIENT
  Sex: Male

DRUGS (11)
  1. HUMULIN R [Suspect]
     Active Substance: INSULIN HUMAN
     Indication: Product used for unknown indication
     Dosage: 300 U, DAILY
     Route: 065
     Dates: end: 2019
  2. INSULIN LISPRO [Suspect]
     Active Substance: INSULIN LISPRO
     Indication: Type 2 diabetes mellitus
     Dosage: 200 U, UNKNOWN
     Route: 065
     Dates: start: 2020
  3. INSULIN LISPRO [Suspect]
     Active Substance: INSULIN LISPRO
     Indication: Latent autoimmune diabetes in adults
     Dosage: 200 U, UNKNOWN
     Route: 065
  4. INSULIN LISPRO [Suspect]
     Active Substance: INSULIN LISPRO
     Dosage: 200 U, UNKNOWN
     Route: 065
  5. INSULIN LISPRO [Suspect]
     Active Substance: INSULIN LISPRO
     Dosage: 200 U, UNKNOWN
     Route: 065
  6. OZEMPIC [Suspect]
     Active Substance: SEMAGLUTIDE
     Indication: Product used for unknown indication
     Dosage: UNK UNK, UNKNOWN
     Route: 065
  7. METFORMIN [Concomitant]
     Active Substance: METFORMIN HYDROCHLORIDE
     Indication: Product used for unknown indication
  8. LEVEMIR [Concomitant]
     Active Substance: INSULIN DETEMIR
     Indication: Product used for unknown indication
  9. JARDIANCE [Concomitant]
     Active Substance: EMPAGLIFLOZIN
     Indication: Product used for unknown indication
  10. NOVOLOG [Concomitant]
     Active Substance: INSULIN ASPART
     Indication: Product used for unknown indication
  11. VICTOZA [Concomitant]
     Active Substance: LIRAGLUTIDE
     Indication: Product used for unknown indication

REACTIONS (13)
  - Cardiac disorder [Unknown]
  - Loss of consciousness [Recovered/Resolved]
  - Blood glucose increased [Unknown]
  - Blood glucose fluctuation [Recovered/Resolved]
  - Glycosylated haemoglobin increased [Unknown]
  - Staphylococcal infection [Recovered/Resolved]
  - Escherichia infection [Recovered/Resolved]
  - Insulin resistance [Not Recovered/Not Resolved]
  - Abdominal discomfort [Unknown]
  - Gait disturbance [Unknown]
  - Malaise [Unknown]
  - Hyperhidrosis [Recovered/Resolved]
  - Blood glucose decreased [Recovered/Resolved]
